FAERS Safety Report 4553807-4 (Version None)
Quarter: 2004Q4

REPORT INFORMATION
  Report Type: 
  Country: None (occurrence: None)
  Receive Date: 20041227
  Receipt Date: 20041102
  Transmission Date: 20050328
  Serious: No
  Sender: FDA-Public Use
  Company Number: 04P-163-0279637-00

PATIENT
  Age: 43 Year
  Sex: Female
  Weight: 47.1741 kg

DRUGS (3)
  1. HUMIRA [Suspect]
     Indication: ARTHRITIS
     Dosage: 40 MG, 1 IN 2 WK, SUBCUTANEOUS
     Route: 058
     Dates: start: 20040701, end: 20041014
  2. ENOXAPARIN SODIUM [Concomitant]
  3. FOLGARD [Concomitant]

REACTIONS (3)
  - FATIGUE [None]
  - NASOPHARYNGITIS [None]
  - PAIN [None]
